FAERS Safety Report 6516706-4 (Version None)
Quarter: 2009Q4

REPORT INFORMATION
  Report Type: 
  Country: None (occurrence: None)
  Receive Date: 20091223
  Receipt Date: 20081117
  Transmission Date: 20100525
  Serious: No
  Sender: FDA-Public Use
  Company Number: A0757063A

PATIENT
  Age: 71 Year
  Sex: Female

DRUGS (2)
  1. PROPAFENONE HCL [Suspect]
     Indication: CARDIAC ABLATION
     Dosage: 150MG THREE TIMES PER DAY
     Dates: start: 20070201
  2. UNKNOWN [Concomitant]

REACTIONS (2)
  - HYPOAESTHESIA [None]
  - PARAESTHESIA [None]
